FAERS Safety Report 6291516-4 (Version None)
Quarter: 2009Q3

REPORT INFORMATION
  Report Type: 
  Country: None (occurrence: None)
  Receive Date: 20090730
  Receipt Date: 20090720
  Transmission Date: 20100115
  Serious: Yes (Hospitalization)
  Sender: FDA-Public Use
  Company Number: US-SANOFI-SYNTHELABO-A03200903207

PATIENT
  Age: 42 Year
  Sex: Male

DRUGS (4)
  1. ORAL CALCIUM [Suspect]
     Indication: THYROIDECTOMY
     Dosage: UNK
     Route: 065
  2. ORAL CALCIUM [Suspect]
     Indication: RADICAL NECK DISSECTION
     Dosage: UNK
     Route: 065
  3. ERGOCALCIFEROL [Suspect]
     Indication: THYROIDECTOMY
     Dosage: UNK
     Route: 048
  4. ERGOCALCIFEROL [Suspect]
     Indication: RADICAL NECK DISSECTION
     Dosage: UNK
     Route: 048

REACTIONS (2)
  - ELECTROCARDIOGRAM QT PROLONGED [None]
  - HYPOCALCAEMIA [None]
